FAERS Safety Report 13013637 (Version 1)
Quarter: 2016Q4

REPORT INFORMATION
  Report Type: Spontaneous
  Country: US (occurrence: US)
  Receive Date: 20161209
  Receipt Date: 20161209
  Transmission Date: 20170207
  Serious: Yes (Hospitalization)
  Sender: FDA-Public Use
  Company Number: PHHY2016US166808

PATIENT
  Age: 76 Year
  Sex: Male

DRUGS (1)
  1. VANCOMYCIN [Suspect]
     Active Substance: VANCOMYCIN
     Indication: SEPTIC ARTHRITIS STAPHYLOCOCCAL
     Route: 065

REACTIONS (4)
  - Renal tubular necrosis [Unknown]
  - Deep vein thrombosis [Unknown]
  - Renal failure [Unknown]
  - Toxicity to various agents [Unknown]
